FAERS Safety Report 9761023 (Version 1)
Quarter: 2013Q4

REPORT INFORMATION
  Report Type: Spontaneous
  Country: US (occurrence: US)
  Receive Date: 20131216
  Receipt Date: 20131216
  Transmission Date: 20140711
  Serious: No
  Sender: FDA-Public Use
  Company Number: US-B.I. PHARMACEUTICALS,INC./RIDGEFIELD-2013-BI-38748BP

PATIENT
  Age: 69 Year
  Sex: Female
  Weight: 66 kg

DRUGS (3)
  1. SPIRIVA [Suspect]
     Indication: ASTHMA
     Dosage: 18 MCG
     Route: 045
     Dates: start: 200402, end: 20131118
  2. SYMBICORT [Concomitant]
     Indication: ASTHMA
     Dosage: (INHALATION AEROSOL)
     Route: 055
     Dates: start: 201308, end: 20131118
  3. BYSTOLIC [Concomitant]
     Indication: HYPERTENSION
     Dates: start: 201306

REACTIONS (5)
  - Off label use [Recovered/Resolved]
  - Oropharyngeal pain [Recovered/Resolved]
  - Dyspnoea [Not Recovered/Not Resolved]
  - Dysphonia [Recovered/Resolved]
  - Dyspnoea [Recovered/Resolved]
